FAERS Safety Report 4369850-4 (Version None)
Quarter: 2004Q2

REPORT INFORMATION
  Report Type: 
  Country: None (occurrence: None)
  Receive Date: 20040527
  Receipt Date: 20040514
  Transmission Date: 20050107
  Serious: Yes (Death, Hospitalization)
  Sender: FDA-Public Use
  Company Number: 2004021290

PATIENT
  Age: 37 Year
  Sex: Female

DRUGS (4)
  1. SERTRALINE HCL [Suspect]
     Indication: ILL-DEFINED DISORDER
     Dosage: 50 MG (1 IN 1 D), ORAL
     Route: 048
     Dates: start: 20040220
  2. CITALOPRAM [Concomitant]
  3. VENLAFAXINE HCL [Concomitant]
  4. RISPERDAL [Concomitant]

REACTIONS (4)
  - NAUSEA [None]
  - OVERDOSE [None]
  - PNEUMONITIS [None]
  - VOMITING [None]
